FAERS Safety Report 7300633-9 (Version None)
Quarter: 2011Q1

REPORT INFORMATION
  Report Type: 
  Country: None (occurrence: None)
  Receive Date: 20110218
  Receipt Date: 20110203
  Transmission Date: 20110831
  Serious: No
  Sender: FDA-Public Use
  Company Number: 2009BI026680

PATIENT
  Age: 43 Year
  Sex: Female

DRUGS (1)
  1. TYSABRI [Suspect]
     Indication: MULTIPLE SCLEROSIS
     Route: 042
     Dates: start: 20090727

REACTIONS (21)
  - DYSPEPSIA [None]
  - RHINALGIA [None]
  - RHINORRHOEA [None]
  - MULTIPLE SCLEROSIS [None]
  - ABDOMINAL PAIN UPPER [None]
  - PAIN IN EXTREMITY [None]
  - NERVE INJURY [None]
  - BACK PAIN [None]
  - HEADACHE [None]
  - ARTHRALGIA [None]
  - HELICOBACTER INFECTION [None]
  - DIARRHOEA [None]
  - IMPAIRED GASTRIC EMPTYING [None]
  - FATIGUE [None]
  - CONFUSIONAL STATE [None]
  - GASTRIC ULCER [None]
  - MULTIPLE SCLEROSIS RELAPSE [None]
  - CONSTIPATION [None]
  - STAPHYLOCOCCAL INFECTION [None]
  - GINGIVAL PAIN [None]
  - NAUSEA [None]
